FAERS Safety Report 14281577 (Version 1)
Quarter: 2017Q4

REPORT INFORMATION
  Report Type: Spontaneous
  Country: US (occurrence: US)
  Receive Date: 20171213
  Receipt Date: 20171213
  Transmission Date: 20180321
  Serious: Yes (Other)
  Sender: FDA-Public Use
  Company Number: US-DSJP-DSU-2017-151135

PATIENT

DRUGS (1)
  1. BENICAR HCT [Suspect]
     Active Substance: HYDROCHLOROTHIAZIDE\OLMESARTAN MEDOXOMIL
     Indication: HYPERTENSION
     Dosage: 40-12.5MG, QD
     Route: 048
     Dates: start: 20100426, end: 20121120

REACTIONS (2)
  - Diverticulitis [Not Recovered/Not Resolved]
  - Sprue-like enteropathy [Unknown]

NARRATIVE: CASE EVENT DATE: 201011
